FAERS Safety Report 4470256-8 (Version None)
Quarter: 2004Q4

REPORT INFORMATION
  Report Type: 
  Country: None (occurrence: None)
  Receive Date: 20041008
  Receipt Date: 20041004
  Transmission Date: 20050328
  Serious: Yes (Hospitalization)
  Sender: FDA-Public Use
  Company Number: FR-MERCK-0410FRA00008

PATIENT
  Age: 51 Year
  Sex: Male

DRUGS (3)
  1. ACETAMINOPHEN AND BELLADONNA AND CAFFEINE AND OPIUM [Concomitant]
     Indication: OSTEOARTHRITIS
     Route: 048
  2. ACITRETIN [Concomitant]
     Indication: PSORIASIS
     Route: 048
  3. VIOXX [Suspect]
     Indication: OSTEOARTHRITIS
     Route: 048
     Dates: start: 20010101, end: 20040401

REACTIONS (1)
  - EPISTAXIS [None]
